FAERS Safety Report 18928349 (Version 1)
Quarter: 2021Q1

REPORT INFORMATION
  Report Type: Spontaneous
  Country: PT (occurrence: PT)
  Receive Date: 20210223
  Receipt Date: 20210223
  Transmission Date: 20210420
  Serious: Yes (Other)
  Sender: FDA-Public Use
  Company Number: PT-PERRIGO-21PT002293

PATIENT

DRUGS (2)
  1. NIQUITIN [Suspect]
     Active Substance: NICOTINE
     Indication: SMOKING CESSATION THERAPY
     Route: 065
  2. NIQUITIN [Suspect]
     Active Substance: NICOTINE
     Indication: SMOKING CESSATION THERAPY
     Route: 065

REACTIONS (8)
  - Hypoaesthesia [Recovered/Resolved]
  - Pruritus [Recovered/Resolved]
  - Loss of libido [Recovered/Resolved]
  - Malaise [Recovered/Resolved]
  - Laryngeal oedema [Recovered/Resolved]
  - Dyspnoea [Recovered/Resolved]
  - Anxiety [Recovered/Resolved]
  - Asthenia [Recovered/Resolved]
